FAERS Safety Report 8845733 (Version 1)
Quarter: 2012Q4

REPORT INFORMATION
  Report Type: 
  Country: US (occurrence: US)
  Receive Date: 20121017
  Receipt Date: 20121017
  Transmission Date: 20130627
  Serious: No
  Sender: FDA-Public Use
  Company Number: US-PFIZER INC-2012258952

PATIENT

DRUGS (1)
  1. XANAX [Suspect]
     Indication: ANXIETY
     Dosage: 1 mg, a night

REACTIONS (1)
  - Insomnia [Unknown]
